FAERS Safety Report 6394181-0 (Version None)
Quarter: 2009Q4

REPORT INFORMATION
  Report Type: 
  Country: None (occurrence: None)
  Receive Date: 20091008
  Receipt Date: 20091008
  Transmission Date: 20100525
  Serious: Yes (Other)
  Sender: FDA-Public Use
  Company Number: AU-RB-021062-09

PATIENT
  Age: 36 Year
  Sex: Female
  Weight: 83 kg

DRUGS (7)
  1. SUBOXONE [Suspect]
     Indication: DRUG ABUSE
     Route: 060
     Dates: start: 20090706
  2. SUBOXONE [Suspect]
     Route: 060
     Dates: start: 20090101, end: 20090101
  3. SUBOXONE [Suspect]
     Route: 060
     Dates: start: 20090101, end: 20090101
  4. SUBOXONE [Suspect]
     Route: 060
     Dates: start: 20091001
  5. DOXYLAMINE SUCCINATE [Concomitant]
     Indication: DRUG USE FOR UNKNOWN INDICATION
     Dosage: DOSING INFORMATION UNKNOWN.
     Route: 065
  6. CODEINE [Concomitant]
     Indication: DRUG USE FOR UNKNOWN INDICATION
     Dosage: DOSING INFORMATION UNKNOWN.
     Route: 065
  7. ACETAMINOPHEN [Concomitant]
     Indication: DRUG USE FOR UNKNOWN INDICATION
     Dosage: DOSING INFORMATION UNKNOWN.
     Route: 065

REACTIONS (2)
  - HALLUCINATIONS, MIXED [None]
  - MUSCLE TWITCHING [None]
